FAERS Safety Report 13949430 (Version 2)
Quarter: 2017Q3

REPORT INFORMATION
  Report Type: Spontaneous
  Country: US (occurrence: US)
  Receive Date: 20170908
  Receipt Date: 20170926
  Transmission Date: 20171128
  Serious: No
  Sender: FDA-Public Use
  Company Number: US-009507513-1709USA004057

PATIENT
  Age: 56 Year
  Sex: Female
  Weight: 70.75 kg

DRUGS (4)
  1. BELSOMRA [Suspect]
     Active Substance: SUVOREXANT
     Indication: INSOMNIA
     Dosage: 15 MG, HS
     Route: 048
     Dates: start: 20170727, end: 20170728
  2. LORAZEPAM. [Concomitant]
     Active Substance: LORAZEPAM
     Indication: ANXIETY
     Dosage: 1 MG, QD
     Route: 048
     Dates: start: 20160303
  3. OMEPRAZOLE. [Concomitant]
     Active Substance: OMEPRAZOLE
     Indication: GASTROOESOPHAGEAL REFLUX DISEASE
     Dosage: 1 TABLET (20MG), BID
     Route: 048
  4. NATURE-THROID [Concomitant]
     Active Substance: THYROID, PORCINE
     Indication: HYPOTHYROIDISM
     Dosage: 1 TABLET (113.75 MG) DAILY
     Route: 048
     Dates: start: 20161004

REACTIONS (2)
  - Nausea [Recovered/Resolved]
  - Hangover [Recovered/Resolved]

NARRATIVE: CASE EVENT DATE: 20170728
